FAERS Safety Report 10071558 (Version 1)
Quarter: 2014Q2

REPORT INFORMATION
  Report Type: Spontaneous
  Country: CH (occurrence: CH)
  Receive Date: 20140410
  Receipt Date: 20140410
  Transmission Date: 20141212
  Serious: Yes (Other)
  Sender: FDA-Public Use
  Company Number: CH-RB-065567-14

PATIENT
  Age: 86 Year
  Sex: Male

DRUGS (18)
  1. TEMGESIC [Suspect]
     Indication: ARTHRALGIA
     Route: 058
     Dates: start: 20131121, end: 20131125
  2. TEMGESIC [Suspect]
     Dosage: PRESCRIBED AS AN AS NECESSARY BOLUS IN CONJUNCTION WITH THE THREE TIMES A DAY STANDING DOSE
     Route: 058
     Dates: start: 20131121, end: 20131125
  3. TEMGESIC [Suspect]
     Dosage: BOLUS GIVEN AS NEEDED DURING TREATMENT WITH TRANSTEC PATCH
     Route: 058
     Dates: start: 20131125, end: 20131126
  4. TARGIN [Suspect]
     Indication: PRODUCT USED FOR UNKNOWN INDICATION
     Dosage: 2 DOSAGE FORMS EVERY DAY; SOMNOLENCE OBESERVED WHEN OXYNORM BOLUSES WERE ADMINISTERED
     Route: 048
     Dates: start: 201309, end: 20131119
  5. OXYNORM [Suspect]
     Indication: PRODUCT USED FOR UNKNOWN INDICATION
     Dosage: SOMNOLENCE OBSERVED WHEN BOLUSES OF OXYNORM WERE ADMINISTERED IN ADDITION TO TARGIN
     Route: 048
     Dates: start: 20131110, end: 20131111
  6. MORPHINE [Suspect]
     Indication: ARTHRALGIA
     Dosage: MORPHINE IN HOSPITAL PREPARATION; MORPHINE ADDED TO TARGIN CAUSED SOMNOLENCE AND HALLUCINATION
     Route: 058
     Dates: start: 20131117, end: 20131121
  7. TRANSTEC [Suspect]
     Indication: ARTHRALGIA
     Dosage: 1/2 OF A TRANSTEC PATCH EVERY 72 HOURS WHICH TRANSLATES TO 17.75 MICROGR/HR
     Route: 062
     Dates: start: 20131125, end: 20131126
  8. RIFAMPICIN [Suspect]
     Indication: ARTHRITIS BACTERIAL
     Dosage: INDICATION: SEPTIC LOOSENING OF TOTAL HIP PROSTHESIS (THIS TERM NOT FOUND AMONG THE CODED TERMS)
     Route: 048
     Dates: start: 20131125
  9. VANCOMYCIN [Concomitant]
     Indication: ARTHRITIS BACTERIAL
     Dosage: INDICATION: SEPTIC LOOSENING OF TOTAL HIP PROSTHESIS (THIS TERM NOT FOUND AMONG THE CODED TERMS)
     Route: 041
     Dates: start: 201311
  10. SINTROM [Concomitant]
     Indication: PRODUCT USED FOR UNKNOWN INDICATION
     Dosage: LONG TERM
     Route: 065
  11. BELOC [Concomitant]
     Indication: PRODUCT USED FOR UNKNOWN INDICATION
     Dosage: LONG TERM
     Route: 048
  12. VOLTAREN [Concomitant]
     Indication: PRODUCT USED FOR UNKNOWN INDICATION
     Route: 065
  13. DAFALGAN [Concomitant]
     Indication: PRODUCT USED FOR UNKNOWN INDICATION
     Route: 048
  14. NEXIUM [Concomitant]
     Indication: PRODUCT USED FOR UNKNOWN INDICATION
     Route: 048
  15. MOVICOL [Concomitant]
     Indication: PRODUCT USED FOR UNKNOWN INDICATION
     Route: 048
  16. LAXOBERON [Concomitant]
     Indication: PRODUCT USED FOR UNKNOWN INDICATION
     Route: 048
  17. CALCIMAGON D3 [Concomitant]
     Indication: PRODUCT USED FOR UNKNOWN INDICATION
     Route: 048
  18. CLEXANE [Concomitant]
     Indication: PRODUCT USED FOR UNKNOWN INDICATION
     Route: 058

REACTIONS (6)
  - Somnolence [Recovered/Resolved]
  - Hallucination [Recovered/Resolved]
  - Myoclonus [Recovered/Resolved]
  - Hyperaesthesia [Recovered/Resolved]
  - Confusional state [Recovered/Resolved]
  - Drug interaction [Recovered/Resolved]
